FAERS Safety Report 21955700 (Version 2)
Quarter: 2023Q1

REPORT INFORMATION
  Report Type: Other
  Country: US (occurrence: None)
  Receive Date: 20230206
  Receipt Date: 20230220
  Transmission Date: 20230417
  Serious: Yes (Hospitalization, Other)
  Sender: FDA-Public Use
  Company Number: US-ROCHE-3194278

PATIENT
  Age: 61 Year
  Sex: Female

DRUGS (10)
  1. OCREVUS [Suspect]
     Active Substance: OCRELIZUMAB
     Indication: Primary progressive multiple sclerosis
     Dosage: THEN 600 MG EVERY 6 MONTHS
     Route: 042
     Dates: start: 20180628
  2. TRAZODONE [Concomitant]
     Active Substance: TRAZODONE HYDROCHLORIDE
  3. MELATONIN [Concomitant]
     Active Substance: MELATONIN
  4. BACLOFEN [Concomitant]
     Active Substance: BACLOFEN
  5. VALIUM [Concomitant]
     Active Substance: DIAZEPAM
  6. CRANBERRY [Concomitant]
     Active Substance: CRANBERRY
  7. FIBER [Concomitant]
  8. POTASSIUM [Concomitant]
     Active Substance: POTASSIUM
  9. HERBALS\TURMERIC [Concomitant]
     Active Substance: HERBALS\TURMERIC
  10. GINGER [Concomitant]
     Active Substance: GINGER

REACTIONS (10)
  - Urinary retention [Recovered/Resolved]
  - Paralysis [Not Recovered/Not Resolved]
  - Multiple sclerosis [Not Recovered/Not Resolved]
  - Urinary tract infection [Recovered/Resolved]
  - Calculus bladder [Recovered/Resolved]
  - Nephrolithiasis [Recovered/Resolved]
  - Blood potassium decreased [Not Recovered/Not Resolved]
  - Inflammation [Not Recovered/Not Resolved]
  - Drug ineffective [Unknown]
  - Pruritus [Not Recovered/Not Resolved]

NARRATIVE: CASE EVENT DATE: 20200101
